FAERS Safety Report 4322381-X (Version None)
Quarter: 2004Q1

REPORT INFORMATION
  Report Type: 
  Country: None (occurrence: None)
  Receive Date: 20040324
  Receipt Date: 20040317
  Transmission Date: 20041129
  Serious: Yes (Hospitalization)
  Sender: FDA-Public Use
  Company Number: US-BRISTOL-MYERS SQUIBB COMPANY-12536033

PATIENT
  Age: 77 Year
  Sex: Female
  Weight: 52 kg

DRUGS (5)
  1. PRAVACHOL [Suspect]
     Indication: BLOOD CHOLESTEROL INCREASED
     Route: 048
     Dates: end: 20040315
  2. PREVACID [Concomitant]
  3. TYLENOL W/ CODEINE NO. 3 [Concomitant]
  4. DOXEPIN HCL [Concomitant]
  5. DIAZEPAM [Concomitant]

REACTIONS (8)
  - BACK PAIN [None]
  - BONE PAIN [None]
  - HEADACHE [None]
  - MUSCLE CRAMP [None]
  - MUSCLE INJURY [None]
  - MYALGIA [None]
  - PNEUMONIA [None]
  - WEIGHT DECREASED [None]
